FAERS Safety Report 5899451-8 (Version None)
Quarter: 2008Q3

REPORT INFORMATION
  Report Type: 
  Country: None (occurrence: None)
  Receive Date: 20080926
  Receipt Date: 20080916
  Transmission Date: 20090109
  Serious: Yes (Life-Threatening, Hospitalization, Other)
  Sender: FDA-Public Use
  Company Number: GB-RANBAXY-2008RR-17763

PATIENT
  Age: 65 Year
  Sex: Male

DRUGS (12)
  1. FUROSEMIDE TABLETS BP 40MG [Suspect]
     Indication: OEDEMA PERIPHERAL
     Dosage: 40 MG, QD
     Route: 048
     Dates: start: 20080110, end: 20080603
  2. FUROSEMIDE TABLETS BP 40MG [Suspect]
     Dosage: 20 MG, UNK
     Route: 048
     Dates: start: 20080707
  3. FUROSEMIDE TABLETS BP 40MG [Suspect]
     Dosage: UNK
     Dates: start: 20080627, end: 20080707
  4. MICARDIS [Suspect]
     Indication: HYPERTENSION
     Dosage: 20 MG, QD
     Route: 048
     Dates: start: 20070214, end: 20080528
  5. MICARDIS [Suspect]
     Indication: TYPE 2 DIABETES MELLITUS
     Dosage: 80 MG, QD
     Route: 048
     Dates: start: 20071219, end: 20080214
  6. ASPIRIN [Concomitant]
     Indication: CARDIOVASCULAR EVENT PROPHYLAXIS
     Dosage: 75 MG, QD
     Route: 048
     Dates: start: 20080110
  7. BISOPROLOL FUMARATE [Concomitant]
     Indication: ATRIAL FIBRILLATION
     Dosage: 10 MG, QD
     Route: 048
     Dates: start: 20080402
  8. BISOPROLOL FUMARATE [Concomitant]
     Indication: HYPERTENSION
     Dosage: 2.5 MG, QD
     Route: 048
     Dates: start: 20080312, end: 20080402
  9. BISOPROLOL FUMARATE [Concomitant]
     Dosage: 5 MG, QD
     Route: 048
     Dates: start: 20080228, end: 20080312
  10. LANSOPRAZOLE [Concomitant]
     Indication: DYSPEPSIA
     Dosage: 30 MG, QD
     Route: 048
     Dates: start: 20070704
  11. ROSUVASTATIN [Concomitant]
     Indication: BLOOD CHOLESTEROL INCREASED
     Dosage: 20 MG, QD
     Route: 048
     Dates: start: 20080110, end: 20080312
  12. ROSUVASTATIN [Concomitant]
     Dosage: 30 MG, QD
     Route: 048
     Dates: start: 20080312

REACTIONS (2)
  - GLOMERULAR FILTRATION RATE ABNORMAL [None]
  - RENAL FAILURE [None]
